FAERS Safety Report 8830349 (Version 1)
Quarter: 2012Q4

REPORT INFORMATION
  Report Type: Spontaneous
  Country: US (occurrence: None)
  Receive Date: 20121004
  Receipt Date: 20121004
  Transmission Date: 20130627
  Serious: Yes (Death)
  Sender: FDA-Public Use
  Company Number: FK201202885

PATIENT
  Age: 84 Year
  Sex: Female

DRUGS (3)
  1. PRIALT [Suspect]
     Dosage: UNK mcg, once/hour, Intrathecal
     Route: 037
  2. PRIALT [Suspect]
  3. DILAUDID INJECTION [Suspect]
     Dosage: Unk mg, once/hour, Intrathecal
     Route: 037

REACTIONS (1)
  - Chronic obstructive pulmonary disease [None]
